FAERS Safety Report 15657468 (Version 1)
Quarter: 2018Q4

REPORT INFORMATION
  Report Type: Spontaneous
  Country: US (occurrence: US)
  Receive Date: 20181126
  Receipt Date: 20181126
  Transmission Date: 20190205
  Serious: Yes (Disabling)
  Sender: FDA-Public Use
  Company Number: None

PATIENT
  Age: 67 Year
  Sex: Female
  Weight: 77.11 kg

DRUGS (12)
  1. DEXAMETHASONE. [Concomitant]
     Active Substance: DEXAMETHASONE
  2. BRAFTOVI [Suspect]
     Active Substance: ENCORAFENIB
     Indication: MALIGNANT MELANOMA
     Route: 048
     Dates: start: 20180905, end: 20181111
  3. MEKTOVI [Suspect]
     Active Substance: BINIMETINIB
     Indication: MALIGNANT MELANOMA
     Route: 048
     Dates: start: 20180905, end: 20181111
  4. DOXYCYCLINE. [Concomitant]
     Active Substance: DOXYCYCLINE
  5. EPIPEN [Concomitant]
     Active Substance: EPINEPHRINE
  6. CALCIUM [Concomitant]
     Active Substance: CALCIUM
  7. LEVOTHYROXINE. [Concomitant]
     Active Substance: LEVOTHYROXINE
  8. MUPIROCIN. [Concomitant]
     Active Substance: MUPIROCIN
  9. TYLENOL [Concomitant]
     Active Substance: ACETAMINOPHEN
  10. LORAZEPAM. [Concomitant]
     Active Substance: LORAZEPAM
  11. LORAZEPAM. [Concomitant]
     Active Substance: LORAZEPAM
  12. PROCHLORPERAZINE. [Concomitant]
     Active Substance: PROCHLORPERAZINE

REACTIONS (2)
  - Therapy cessation [None]
  - Neuropathy peripheral [None]

NARRATIVE: CASE EVENT DATE: 20181104
